FAERS Safety Report 19265784 (Version 2)
Quarter: 2021Q2

REPORT INFORMATION
  Report Type: Other
  Country: KR (occurrence: KR)
  Receive Date: 20210517
  Receipt Date: 20210601
  Transmission Date: 20210717
  Serious: Yes (Other)
  Sender: FDA-Public Use
  Company Number: KR-ROCHE-2830813

PATIENT
  Age: 72 Year
  Sex: Male
  Weight: 52.1 kg

DRUGS (2)
  1. ATEZOLIZUMAB. [Suspect]
     Active Substance: ATEZOLIZUMAB
     Indication: NON-SMALL CELL LUNG CANCER METASTATIC
     Dosage: ON 19/APR/2021, 13/MAY/2021, HE RECEIVED THE MOST RECENT DOSE ATEZOLIZUMAB 1200 MG PRIOR ONSET.
     Route: 041
     Dates: start: 20210318
  2. NORVASC [Concomitant]
     Active Substance: AMLODIPINE BESYLATE
     Indication: HYPERTENSION

REACTIONS (1)
  - Hyperkalaemia [Recovered/Resolved]

NARRATIVE: CASE EVENT DATE: 20210510
